FAERS Safety Report 16297862 (Version 1)
Quarter: 2019Q2

REPORT INFORMATION
  Report Type: Report from Study
  Country: US (occurrence: US)
  Receive Date: 20190510
  Receipt Date: 20190510
  Transmission Date: 20190711
  Serious: Yes (Hospitalization, Other)
  Sender: FDA-Public Use
  Company Number: US-MYLANLABS-2019M1044450

PATIENT
  Age: 16 Year
  Sex: Female
  Weight: 36 kg

DRUGS (2)
  1. MERCAPTOPURINE. [Suspect]
     Active Substance: MERCAPTOPURINE
     Indication: CROHN^S DISEASE
     Dosage: 50 MG/KG
     Route: 048
     Dates: start: 20160612
  2. HUMIRA [Suspect]
     Active Substance: ADALIMUMAB
     Indication: CROHN^S DISEASE
     Dosage: 20 MILLIGRAM, Q2W (1 IN 2-2)
     Route: 058
     Dates: start: 20160519

REACTIONS (2)
  - Product use in unapproved indication [Unknown]
  - Crohn^s disease [Recovered/Resolved]

NARRATIVE: CASE EVENT DATE: 20160909
